FAERS Safety Report 17618247 (Version 4)
Quarter: 2020Q4

REPORT INFORMATION
  Report Type: Spontaneous
  Country: US (occurrence: US)
  Receive Date: 20200402
  Receipt Date: 20201110
  Transmission Date: 20210113
  Serious: Yes (Other)
  Sender: FDA-Public Use
  Company Number: US-PFIZER INC-2018466207

PATIENT
  Age: 51 Year
  Sex: Female

DRUGS (2)
  1. RELPAX [Suspect]
     Active Substance: ELETRIPTAN HYDROBROMIDE
     Indication: HEADACHE
     Dosage: 40 MG, UNK (TAKE 1 TABLET, IF HEADACHE RETURNS, MAY REPEAT AFTER 2 HOURS. NO MORE THAN TWO DOSES)
     Route: 048
  2. RELPAX [Suspect]
     Active Substance: ELETRIPTAN HYDROBROMIDE
     Indication: MIGRAINE
     Dosage: 40 MG, AS NEEDED (1-2 TABLETS A WEEK AS NEEDED)
     Route: 048

REACTIONS (9)
  - Stress [Unknown]
  - Concussion [Unknown]
  - Migraine [Unknown]
  - Blindness [Unknown]
  - Blood pressure decreased [Unknown]
  - Intentional product use issue [Unknown]
  - Poor quality sleep [Unknown]
  - Syncope [Unknown]
  - Tremor [Unknown]
